FAERS Safety Report 24565981 (Version 1)
Quarter: 2024Q4

REPORT INFORMATION
  Report Type: Spontaneous
  Country: CN (occurrence: CN)
  Receive Date: 20241030
  Receipt Date: 20241030
  Transmission Date: 20250115
  Serious: Yes (Hospitalization)
  Sender: JOHNSON AND JOHNSON
  Company Number: CN-JNJFOC-20241067586

PATIENT
  Age: 10 Year
  Sex: Female
  Weight: 26 kg

DRUGS (10)
  1. TOPAMAX [Suspect]
     Active Substance: TOPIRAMATE
     Indication: Epilepsy
     Dosage: NASOGASTRIC FEEDING
     Route: 065
     Dates: start: 20240901, end: 20241003
  2. TOPAMAX [Suspect]
     Active Substance: TOPIRAMATE
     Dosage: 107.5 MG IN THE MORNING AND 120 MG IN THE EVENING
     Route: 065
  3. TOPAMAX [Suspect]
     Active Substance: TOPIRAMATE
     Dosage: 95 MG IN THE MORNING AND 107.5 MG IN THE EVENING
     Route: 065
  4. VALPROATE SODIUM [Concomitant]
     Active Substance: VALPROATE SODIUM
     Indication: Epilepsy
     Route: 048
     Dates: start: 20240901, end: 20241010
  5. OXCARBAZEPINE [Concomitant]
     Active Substance: OXCARBAZEPINE
     Indication: Epilepsy
     Dosage: NASOGASTRIC FEEDING
     Dates: start: 20240901, end: 20241010
  6. OXCARBAZEPINE [Concomitant]
     Active Substance: OXCARBAZEPINE
     Dosage: (0.4 MG IN THE MORNING AND 0.6 MG IN THE EVENING)
  7. LEVETIRACETAM [Concomitant]
     Active Substance: LEVETIRACETAM
     Indication: Epilepsy
     Dosage: NASOGASTRIC FEEDING
     Route: 048
     Dates: start: 20240901, end: 20241010
  8. FLUCONAZOLE [Concomitant]
     Active Substance: FLUCONAZOLE
     Indication: Urinary tract infection fungal
     Dosage: NASOGASTRIC FEEDING
     Dates: start: 20240920, end: 20241010
  9. PHENOBARBITAL [Concomitant]
     Active Substance: PHENOBARBITAL
     Indication: Sedation
  10. IBUPROFEN [Concomitant]
     Active Substance: IBUPROFEN
     Indication: Antipyresis

REACTIONS (4)
  - Loss of consciousness [Unknown]
  - Pyrexia [Recovering/Resolving]
  - Mycoplasma infection [Unknown]
  - Off label use [Unknown]

NARRATIVE: CASE EVENT DATE: 20240927
